FAERS Safety Report 9668277 (Version 2)
Quarter: 2013Q4

REPORT INFORMATION
  Report Type: Spontaneous
  Country: US (occurrence: US)
  Receive Date: 20131104
  Receipt Date: 20131104
  Transmission Date: 20140711
  Serious: Yes (Hospitalization)
  Sender: FDA-Public Use
  Company Number: US-BAXTER-2013BAX024910

PATIENT
  Age: 42 Year
  Sex: Male

DRUGS (6)
  1. DIANEAL LOW CALCIUM [Suspect]
     Indication: PERITONEAL DIALYSIS
     Route: 033
  2. DIANEAL LOW CALCIUM [Suspect]
     Indication: PERITONEAL DIALYSIS
     Route: 033
     Dates: start: 201303
  3. DIANEAL LOW CALCIUM [Suspect]
     Route: 033
     Dates: start: 201303
  4. DIANEAL LOW CALCIUM [Suspect]
     Indication: PERITONEAL DIALYSIS
     Route: 033
     Dates: start: 201303
  5. DIANEAL LOW CALCIUM [Suspect]
     Route: 033
     Dates: start: 201303
  6. DIANEAL LOW CALCIUM (ULTRABAG) [Suspect]
     Indication: PERITONEAL DIALYSIS
     Route: 033
     Dates: start: 201303

REACTIONS (4)
  - Kidney infection [Recovered/Resolved]
  - Arteriovenous fistula site complication [Recovering/Resolving]
  - Fluid overload [Recovering/Resolving]
  - Hypertension [Recovered/Resolved]
